FAERS Safety Report 19734430 (Version 2)
Quarter: 2021Q3

REPORT INFORMATION
  Report Type: Report from Study
  Country: ES (occurrence: ES)
  Receive Date: 20210824
  Receipt Date: 20210831
  Transmission Date: 20211014
  Serious: Yes (Other)
  Sender: FDA-Public Use
  Company Number: ES-PFIZER INC-202101025317

PATIENT
  Age: 62 Year
  Sex: Female

DRUGS (7)
  1. CLONAZEPAM. [Concomitant]
     Active Substance: CLONAZEPAM
  2. LORAZEPAM. [Concomitant]
     Active Substance: LORAZEPAM
  3. PERAMPANEL [Interacting]
     Active Substance: PERAMPANEL
     Indication: ORTHOSTATIC TREMOR
     Dosage: 2 MG, DAILY
  4. PREGABALIN. [Suspect]
     Active Substance: PREGABALIN
     Indication: TREMOR
     Dosage: UNK
     Route: 065
  5. GABAPENTIN. [Concomitant]
     Active Substance: GABAPENTIN
  6. PERAMPANEL [Interacting]
     Active Substance: PERAMPANEL
     Dosage: 4 MG, DAILY
  7. OXYCODONE [Concomitant]
     Active Substance: OXYCODONE

REACTIONS (7)
  - Orthostatic tremor [Unknown]
  - Weight increased [Unknown]
  - Drug interaction [Unknown]
  - Gait disturbance [Unknown]
  - Depression [Unknown]
  - Rebound effect [Unknown]
  - Dizziness [Unknown]
